FAERS Safety Report 7768734-9 (Version None)
Quarter: 2011Q3

REPORT INFORMATION
  Report Type: 
  Country: None (occurrence: None)
  Receive Date: 20110922
  Receipt Date: 20110425
  Transmission Date: 20111222
  Serious: No
  Sender: FDA-Public Use
  Company Number: US-ASTRAZENECA-2011SE23554

PATIENT
  Age: 53 Year
  Sex: Female
  Weight: 86.2 kg

DRUGS (4)
  1. SEROQUEL [Suspect]
     Indication: DEPRESSION
     Route: 048
     Dates: start: 19930101, end: 20110417
  2. SEROQUEL [Suspect]
     Dosage: 20 - 75MG AS REQUIRED
     Route: 048
     Dates: start: 19930101, end: 20110417
  3. SEROQUEL [Suspect]
     Dosage: 20 - 75MG AS REQUIRED
     Route: 048
     Dates: start: 19930101, end: 20110417
  4. SEROQUEL [Suspect]
     Indication: SLEEP DISORDER
     Route: 048
     Dates: start: 19930101, end: 20110417

REACTIONS (12)
  - SOMNOLENCE [None]
  - PYREXIA [None]
  - BLOOD TRIGLYCERIDES INCREASED [None]
  - HIGH DENSITY LIPOPROTEIN INCREASED [None]
  - INCREASED APPETITE [None]
  - BLOOD PRESSURE INCREASED [None]
  - CHILLS [None]
  - OROPHARYNGEAL PAIN [None]
  - ABDOMINAL DISCOMFORT [None]
  - WEIGHT INCREASED [None]
  - FATIGUE [None]
  - OFF LABEL USE [None]
